FAERS Safety Report 21660152 (Version 6)
Quarter: 2023Q4

REPORT INFORMATION
  Report Type: Report from Study
  Country: US (occurrence: US)
  Receive Date: 20221130
  Receipt Date: 20231211
  Transmission Date: 20240110
  Serious: No
  Sender: FDA-Public Use
  Company Number: US-DECIPHERA PHARMACEUTICALS LLC-2022US000965

PATIENT
  Age: 84 Year
  Sex: Female

DRUGS (6)
  1. QINLOCK [Suspect]
     Active Substance: RIPRETINIB
     Indication: Gastrointestinal stromal tumour
     Dosage: 100 MILLIGRAM, QD
     Route: 048
     Dates: start: 20221109
  2. QINLOCK [Suspect]
     Active Substance: RIPRETINIB
     Dosage: 150 MILLIGRAM, QD
     Route: 048
     Dates: start: 2022
  3. QINLOCK [Suspect]
     Active Substance: RIPRETINIB
     Dosage: 50 MILLIGRAM, QD
     Route: 048
     Dates: start: 202212, end: 202212
  4. QINLOCK [Suspect]
     Active Substance: RIPRETINIB
     Dosage: 150 MILLIGRAM, QD
     Route: 048
     Dates: start: 202212
  5. QINLOCK [Suspect]
     Active Substance: RIPRETINIB
     Dosage: 150 MILLIGRAM, QOD (THREE 50MG TABLETS (150 MG) ONE DAY AND FOUR 50MG TABLETS (200 MILLIGRAM) ALTERN
     Route: 048
     Dates: start: 202311
  6. QINLOCK [Suspect]
     Active Substance: RIPRETINIB
     Dosage: 200 MILLIGRAM, QOD (THREE 50MG TABLETS (150 MG) ONE DAY AND FOUR 50MG TABLETS (200 MILLIGRAM) ALTERN
     Route: 048
     Dates: start: 202311

REACTIONS (6)
  - Peripheral swelling [Unknown]
  - Scratch [Unknown]
  - Blood pressure increased [Recovered/Resolved]
  - Constipation [Unknown]
  - Dry skin [Unknown]
  - Underdose [Unknown]
